FAERS Safety Report 5296382-1 (Version None)
Quarter: 2007Q2

REPORT INFORMATION
  Report Type: 
  Country: None (occurrence: None)
  Receive Date: 20070413
  Receipt Date: 20070405
  Transmission Date: 20071010
  Serious: Yes (Hospitalization)
  Sender: FDA-Public Use
  Company Number: FR-ROCHE-485975

PATIENT
  Age: 70 Year
  Sex: Female

DRUGS (9)
  1. ROCEPHIN [Suspect]
     Indication: DRUG USE FOR UNKNOWN INDICATION
     Dosage: FORMULATION REPORTED AS INJECTABLE SOLUTION.
     Route: 058
     Dates: start: 20061224, end: 20070102
  2. PREVISCAN [Interacting]
     Indication: DRUG USE FOR UNKNOWN INDICATION
     Route: 048
     Dates: end: 20070102
  3. DICLOFENAC [Concomitant]
     Dosage: CHRONIC TREATMENT.
  4. ACETAMINOPHEN [Concomitant]
     Dosage: CHRONIC TREATMENT.
  5. TARDYFERON [Concomitant]
     Dosage: CHRONIC TREATMENT.
  6. NEORECORMON [Concomitant]
     Dosage: CHRONIC TREATMENT.
  7. STILNOX [Concomitant]
     Dosage: CHRONIC TREATMENT.
  8. DEROXAT [Concomitant]
     Dosage: CHRONIC TREATMENT.
  9. OMEPRAZOLE [Concomitant]
     Dosage: CHRONIC TREATMENT.

REACTIONS (5)
  - ANAEMIA [None]
  - DISEASE PROGRESSION [None]
  - DRUG INTERACTION [None]
  - HAEMATOMA [None]
  - OVERDOSE [None]
